FAERS Safety Report 10660702 (Version 1)
Quarter: 2014Q4

REPORT INFORMATION
  Report Type: Spontaneous
  Country: FR (occurrence: FR)
  Receive Date: 20141217
  Receipt Date: 20141217
  Transmission Date: 20150529
  Serious: Yes (Other)
  Sender: FDA-Public Use
  Company Number: FR-MYLANLABS-2014M1014638

PATIENT

DRUGS (1)
  1. DEXAMETHASONE. [Suspect]
     Active Substance: DEXAMETHASONE
     Dosage: 20 MICROG/KG/DAY
     Route: 065

REACTIONS (5)
  - Skin striae [Unknown]
  - Pancreatitis acute [Recovering/Resolving]
  - Maternal exposure during pregnancy [Unknown]
  - Acne [Unknown]
  - Weight increased [Recovering/Resolving]
